FAERS Safety Report 20700056 (Version 1)
Quarter: 2022Q2

REPORT INFORMATION
  Report Type: Spontaneous
  Country: US (occurrence: None)
  Receive Date: 20220411
  Receipt Date: 20220411
  Transmission Date: 20220720
  Serious: Yes (Other)
  Sender: FDA-Public Use
  Company Number: None

PATIENT
  Age: 32 Year
  Sex: Male
  Weight: 77.11 kg

DRUGS (1)
  1. BUPRENORPHINE HYDROCHLORIDE AND NALOXONE HYDROCHLORIDE [Suspect]
     Active Substance: BUPRENORPHINE HYDROCHLORIDE\NALOXONE HYDROCHLORIDE
     Indication: Drug dependence
     Dosage: OTHER QUANTITY : 2.5 TAB, 8-2MG;?FREQUENCY : DAILY;?
     Route: 060
     Dates: start: 20210810, end: 20220408

REACTIONS (4)
  - Urticaria [None]
  - Glossodynia [None]
  - Impaired healing [None]
  - Nausea [None]

NARRATIVE: CASE EVENT DATE: 20220207
